FAERS Safety Report 9869835 (Version 3)
Quarter: 2014Q1

REPORT INFORMATION
  Report Type: Report from Study
  Country: DE (occurrence: DE)
  Receive Date: 20140205
  Receipt Date: 20140213
  Transmission Date: 20141002
  Serious: Yes (Other)
  Sender: FDA-Public Use
  Company Number: PHHY2012DE058132

PATIENT
  Sex: Female

DRUGS (4)
  1. EXTAVIA [Suspect]
     Indication: MULTIPLE SCLEROSIS
     Dosage: 250 UG/ML, ONCE EVERY OTHER DAY
     Route: 058
     Dates: start: 20110501
  2. EXTAVIA [Suspect]
     Dosage: 187.5 UG/ML, ONCE EVERY OTHER DAY
     Route: 058
  3. EXTAVIA [Suspect]
     Dosage: 250 UG/ML, ONCE EVERY OTHER DAY
     Route: 058
  4. EXTAVIA [Suspect]
     Dosage: 187.5 UG/ML, ONCE EVERY OTHER DAY
     Route: 058

REACTIONS (4)
  - Ankle fracture [Recovering/Resolving]
  - Ligament sprain [Recovering/Resolving]
  - Injection site pain [Not Recovered/Not Resolved]
  - Injection site erythema [Not Recovered/Not Resolved]
